FAERS Safety Report 7969207-0 (Version None)
Quarter: 2011Q4

REPORT INFORMATION
  Report Type: 
  Country: None (occurrence: None)
  Receive Date: 20111209
  Receipt Date: 20111207
  Transmission Date: 20120403
  Serious: Yes (Life-Threatening, Hospitalization)
  Sender: FDA-Public Use
  Company Number: AU-B.I. PHARMACEUTICALS,INC./RIDGEFIELD-2011-AU-02054AU

PATIENT
  Sex: Male

DRUGS (6)
  1. RABEPRAZOLE SODIUM [Concomitant]
     Dosage: 20 MG
  2. BISOPROLOL FUMARATE [Concomitant]
     Dosage: 1.25 MG
  3. FUROSEMIDE [Concomitant]
     Dosage: 40 MG
  4. KARVEA [Concomitant]
     Dosage: 150 MG
  5. ALLOPURINOL [Concomitant]
     Dosage: 100 MG
  6. PRADAXA [Suspect]
     Dosage: 300 MG
     Dates: end: 20111103

REACTIONS (3)
  - CEREBROVASCULAR ACCIDENT [None]
  - VIITH NERVE PARALYSIS [None]
  - APHASIA [None]
